FAERS Safety Report 6396887-6 (Version None)
Quarter: 2009Q4

REPORT INFORMATION
  Report Type: 
  Country: None (occurrence: None)
  Receive Date: 20091012
  Receipt Date: 20090713
  Transmission Date: 20100525
  Serious: No
  Sender: FDA-Public Use
  Company Number: US-ASTRAZENECA-2009UW19528

PATIENT
  Age: 29964 Day
  Sex: Male
  Weight: 81.6 kg

DRUGS (9)
  1. SYMBICORT [Suspect]
     Indication: CHRONIC OBSTRUCTIVE PULMONARY DISEASE
     Dosage: 160/4.5, 2 PUFFS
     Route: 055
     Dates: start: 20090627, end: 20090712
  2. SPIRIVA [Concomitant]
  3. ASPIRIN [Concomitant]
  4. LISINOPRIL [Concomitant]
  5. ALLOPURINOL [Concomitant]
  6. VITAMIN E [Concomitant]
  7. MULTI-VITAMIN [Concomitant]
  8. AMLODIPINE [Concomitant]
  9. TIMOLOL MALEATE [Concomitant]

REACTIONS (2)
  - EPISTAXIS [None]
  - RHINORRHOEA [None]
